FAERS Safety Report 7488430-5 (Version None)
Quarter: 2011Q2

REPORT INFORMATION
  Report Type: 
  Country: None (occurrence: None)
  Receive Date: 20110518
  Receipt Date: 20110511
  Transmission Date: 20111010
  Serious: Yes (Hospitalization, Other)
  Sender: FDA-Public Use
  Company Number: US-PFIZER INC-2011102044

PATIENT

DRUGS (1)
  1. GLIPIZIDE [Suspect]
     Dosage: 5 MG XL (AS REPORTED)

REACTIONS (2)
  - HAEMODIALYSIS [None]
  - CREATININE RENAL CLEARANCE DECREASED [None]
